FAERS Safety Report 14189506 (Version 3)
Quarter: 2018Q1

REPORT INFORMATION
  Report Type: Spontaneous
  Country: BR (occurrence: BR)
  Receive Date: 20171115
  Receipt Date: 20180301
  Transmission Date: 20180508
  Serious: Yes (Other)
  Sender: FDA-Public Use
  Company Number: BR-AMGEN-BRASP2017171099

PATIENT
  Age: 61 Year
  Sex: Female

DRUGS (2)
  1. ENBREL [Suspect]
     Active Substance: ETANERCEPT
     Indication: RHEUMATIC DISORDER
     Dosage: UNK, QWK
     Route: 065
     Dates: start: 201512, end: 201601
  2. METHOTREXATE. [Concomitant]
     Active Substance: METHOTREXATE
     Indication: RHEUMATOID ARTHRITIS
     Dosage: UNK
     Dates: start: 2003

REACTIONS (4)
  - Anaemia [Recovered/Resolved]
  - Wrong technique in product usage process [Recovered/Resolved]
  - Vomiting [Recovered/Resolved]
  - Dysentery [Recovered/Resolved]

NARRATIVE: CASE EVENT DATE: 201512
